FAERS Safety Report 17932954 (Version 3)
Quarter: 2020Q3

REPORT INFORMATION
  Report Type: Spontaneous
  Country: US (occurrence: US)
  Receive Date: 20200624
  Receipt Date: 20200813
  Transmission Date: 20201103
  Serious: No
  Sender: FDA-Public Use
  Company Number: US-GW PHARMA-202006USGW02195

PATIENT

DRUGS (9)
  1. TOPAMAX [Concomitant]
     Active Substance: TOPIRAMATE
     Indication: EPILEPSY
     Dosage: 50 MILLIGRAM, QH
     Route: 065
  2. DEPAKOTE [Concomitant]
     Active Substance: DIVALPROEX SODIUM
     Indication: EPILEPSY
     Dosage: 750 MILLIGRAM, BID
     Route: 065
  3. EPIDIOLEX [Suspect]
     Active Substance: CANNABIDIOL
     Dosage: 600 MILLIGRAM, BID
     Route: 048
     Dates: start: 20200507, end: 20200531
  4. BRIVIACT [Concomitant]
     Active Substance: BRIVARACETAM
     Indication: EPILEPSY
     Dosage: 100 MILLIGRAM, BID
     Route: 065
  5. EPIDIOLEX [Suspect]
     Active Substance: CANNABIDIOL
     Dosage: 800 MILLIGRAM, BID
     Route: 048
     Dates: start: 202001, end: 20200506
  6. EPIDIOLEX [Suspect]
     Active Substance: CANNABIDIOL
     Indication: EPILEPSY
     Dosage: UNKNOWN DOSE
     Route: 048
     Dates: start: 20190801, end: 202001
  7. LAMOTRIGINE. [Concomitant]
     Active Substance: LAMOTRIGINE
     Indication: EPILEPSY
     Dosage: 175 MILLIGRAM, BID
     Route: 065
  8. DIVALPROEX [Concomitant]
     Active Substance: DIVALPROEX SODIUM
     Indication: PRODUCT USED FOR UNKNOWN INDICATION
     Dosage: UNK
     Route: 065
  9. AMITRIPTYLINE [Concomitant]
     Active Substance: AMITRIPTYLINE
     Indication: PRODUCT USED FOR UNKNOWN INDICATION
     Dosage: UNK
     Route: 065

REACTIONS (2)
  - Rectal haemorrhage [Recovered/Resolved]
  - Drug ineffective [Recovered/Resolved]

NARRATIVE: CASE EVENT DATE: 20190801
